FAERS Safety Report 9774708 (Version 1)
Quarter: 2013Q4

REPORT INFORMATION
  Report Type: Spontaneous
  Country: US (occurrence: US)
  Receive Date: 20131220
  Receipt Date: 20131220
  Transmission Date: 20140711
  Serious: No
  Sender: FDA-Public Use
  Company Number: US-PFIZER INC-2013364866

PATIENT
  Age: 56 Year
  Sex: Female
  Weight: 63.49 kg

DRUGS (5)
  1. EFFEXOR XR [Suspect]
     Indication: DEPRESSION
     Dosage: UNK
     Dates: end: 2013
  2. EFFEXOR XR [Suspect]
     Dosage: 150 MG, DAILY
     Dates: start: 2013
  3. CRESTOR [Concomitant]
     Dosage: 20 MG, DAILY
  4. CRESTOR [Concomitant]
     Dosage: 40 MG, DAILY
  5. METOPROLOL [Concomitant]
     Indication: HYPERTENSION
     Dosage: 50 MG, DAILY

REACTIONS (6)
  - Fatigue [Unknown]
  - Hyperhidrosis [Unknown]
  - Somnolence [Unknown]
  - Yawning [Unknown]
  - Cough [Unknown]
  - Dry mouth [Unknown]
